FAERS Safety Report 9760306 (Version 2)
Quarter: 2013Q4

REPORT INFORMATION
  Report Type: Spontaneous
  Country: US (occurrence: US)
  Receive Date: 20131216
  Receipt Date: 20131216
  Transmission Date: 20140711
  Serious: No
  Sender: FDA-Public Use
  Company Number: US-GILEAD-2010-0028899

PATIENT
  Age: 69 Year
  Sex: Female
  Weight: 108.86 kg

DRUGS (14)
  1. LETAIRIS [Suspect]
     Indication: PULMONARY ARTERIAL HYPERTENSION
     Route: 048
     Dates: start: 20100416
  2. POTASSIUM CHLORIDE [Concomitant]
  3. FOLIC ACID [Concomitant]
  4. NITROGLYCERIN [Concomitant]
  5. PLAVIX [Concomitant]
  6. NEXIUM [Concomitant]
  7. ASPIRIN [Concomitant]
  8. SIMVASTATIN [Concomitant]
  9. IMDUR [Concomitant]
  10. FERROUS SULFATE [Concomitant]
  11. DIOVAN [Concomitant]
  12. SYNTHROID [Concomitant]
  13. METOPROLOL [Concomitant]
  14. LASIX [Concomitant]

REACTIONS (1)
  - Local swelling [Unknown]
